FAERS Safety Report 9670946 (Version 2)
Quarter: 2013Q4

REPORT INFORMATION
  Report Type: Spontaneous
  Country: FR (occurrence: FR)
  Receive Date: 20131106
  Receipt Date: 20131106
  Transmission Date: 20140711
  Serious: Yes (Other)
  Sender: FDA-Public Use
  Company Number: FR-009507513-89120266

PATIENT
  Age: 21 Year
  Sex: Female

DRUGS (3)
  1. NOROXIN [Suspect]
     Indication: URINARY TRACT INFECTION
     Dosage: 400 MG, BID
     Route: 048
     Dates: start: 19891004, end: 19891020
  2. AMPICILLIN [Concomitant]
     Dosage: 4000 MG, UNK
     Dates: start: 19890929, end: 19891003
  3. DIBEKACIN SULFATE [Concomitant]
     Dosage: 150 MG, UNK
     Dates: start: 19890929, end: 19891002

REACTIONS (2)
  - Abortion spontaneous [Unknown]
  - Exposure during pregnancy [Unknown]
